FAERS Safety Report 9252327 (Version 1)
Quarter: 2013Q1

REPORT INFORMATION
  Report Type: Spontaneous
  Country: US (occurrence: None)
  Receive Date: 20130305
  Receipt Date: 20130305
  Transmission Date: 20140127
  Serious: Yes (Other)
  Sender: FDA-Public Use
  Company Number: 163-21880-12090608 (0)

PATIENT
  Age: 76 Year
  Sex: Female

DRUGS (4)
  1. REVLIMID [Suspect]
     Indication: MYELODYSPLASTIC SYNDROME
     Dosage: 10 MG, 21 IN 21 D, PO
     Route: 048
     Dates: start: 20100406, end: 2011
  2. CALCIUM 600 + D3 CALCIUM DC ^STADA^) [Concomitant]
  3. AZITHROMYCIN (AZITHROMYCIN) [Concomitant]
  4. ALBUTEROL SULFATE (SALBUTAMOL SULFATE) [Concomitant]

REACTIONS (2)
  - Dysphonia [None]
  - Bronchitis [None]
